FAERS Safety Report 5979457-0 (Version None)
Quarter: 2008Q4

REPORT INFORMATION
  Report Type: 
  Country: None (occurrence: None)
  Receive Date: 20081204
  Receipt Date: 20081120
  Transmission Date: 20090506
  Serious: No
  Sender: FDA-Public Use
  Company Number: US-ELI_LILLY_AND_COMPANY-US200811005148

PATIENT
  Age: 37 Year
  Sex: Female

DRUGS (4)
  1. CYMBALTA [Suspect]
     Indication: ANXIETY
     Dosage: 60 MG, DAILY (1/D)
     Dates: start: 20070101
  2. PROVIGIL [Concomitant]
     Dosage: 50 MG, DAILY (1/D)
  3. TRAZODONE HCL [Concomitant]
     Dosage: 25 MG, EACH EVENING
  4. CONTRACEPTIVES NOS [Concomitant]

REACTIONS (2)
  - BLOOD IRON INCREASED [None]
  - LIVER DISORDER [None]
